FAERS Safety Report 25401558 (Version 1)
Quarter: 2025Q2

REPORT INFORMATION
  Report Type: Report from Study
  Country: US (occurrence: US)
  Receive Date: 20250605
  Receipt Date: 20250605
  Transmission Date: 20250716
  Serious: Yes (Hospitalization, Other)
  Sender: UCB
  Company Number: US-UCBSA-2025033072

PATIENT
  Sex: Male

DRUGS (8)
  1. BIMEKIZUMAB [Suspect]
     Active Substance: BIMEKIZUMAB
     Indication: Psoriasis
     Dosage: 320 MILLIGRAM, EV 4 WEEKS
  2. BIMEKIZUMAB [Suspect]
     Active Substance: BIMEKIZUMAB
     Indication: Psoriatic arthropathy
     Dosage: 320 MILLIGRAM, EV 8 WEEKS
  3. FOLIC ACID [Concomitant]
     Active Substance: FOLIC ACID
     Indication: Pneumonia necrotising
  4. MULTIVITAMIN IRON [Concomitant]
     Indication: Pneumonia necrotising
  5. BISOPROLOL FUMARATE [Concomitant]
     Active Substance: BISOPROLOL FUMARATE
     Indication: Pneumonia necrotising
  6. FERROUS SULFATE [Concomitant]
     Active Substance: FERROUS SULFATE
     Indication: Pneumonia necrotising
  7. FUROSEMIDE [Concomitant]
     Active Substance: FUROSEMIDE
     Indication: Pneumonia necrotising
  8. CALCIUM CHLORIDE [Concomitant]
     Active Substance: CALCIUM CHLORIDE
     Indication: Pneumonia necrotising

REACTIONS (1)
  - Pneumonia necrotising [Recovering/Resolving]
